FAERS Safety Report 19622380 (Version 2)
Quarter: 2021Q3

REPORT INFORMATION
  Report Type: Spontaneous
  Country: US (occurrence: US)
  Receive Date: 20210728
  Receipt Date: 20210823
  Transmission Date: 20211014
  Serious: No
  Sender: FDA-Public Use
  Company Number: US-GLENMARK PHARMACEUTICALS-2021GMK066736

PATIENT

DRUGS (1)
  1. THEOPHYLLINE (ANHYDROUS) EXTENDED RELEASE TABLETS, 400 MG [Suspect]
     Active Substance: THEOPHYLLINE ANHYDROUS
     Indication: PRODUCT USED FOR UNKNOWN INDICATION
     Dosage: 400 MILLIGRAM, OD
     Route: 065

REACTIONS (1)
  - Therapeutic product effect incomplete [Unknown]
